FAERS Safety Report 21096602 (Version 1)
Quarter: 2022Q3

REPORT INFORMATION
  Report Type: Other
  Country: AU (occurrence: None)
  Receive Date: 20220718
  Receipt Date: 20220718
  Transmission Date: 20221027
  Serious: Yes (Hospitalization, Other)
  Sender: FDA-Public Use
  Company Number: AU-ROCHE-3136504

PATIENT
  Age: 46 Year
  Sex: Female
  Weight: 106.5 kg

DRUGS (16)
  1. RITUXIMAB [Suspect]
     Active Substance: RITUXIMAB
     Indication: Follicular lymphoma
     Dosage: 6 COURCES X 3 WEEKLY CYCLES
     Route: 065
     Dates: start: 200609, end: 200701
  2. RITUXIMAB [Suspect]
     Active Substance: RITUXIMAB
     Dosage: 3 MONTHLY
     Route: 065
     Dates: start: 200708, end: 200905
  3. RITUXIMAB [Suspect]
     Active Substance: RITUXIMAB
     Dosage: 6 COURCES X 3 WEEKLY CYCLES?ON /AUG/2012: 3 MONTHLY
     Route: 065
     Dates: start: 201202, end: 201309
  4. CYCLOPHOSPHAMIDE [Suspect]
     Active Substance: CYCLOPHOSPHAMIDE
     Indication: Follicular lymphoma
     Dosage: 6 COURCES X 3 WEEKLY CYCLES
     Route: 065
     Dates: start: 200609, end: 200701
  5. CYCLOPHOSPHAMIDE [Suspect]
     Active Substance: CYCLOPHOSPHAMIDE
     Dosage: 6 COURCES X 3 WEEKLY CYCLES
     Route: 065
     Dates: start: 201202, end: 201208
  6. ONCOVIN [Suspect]
     Active Substance: VINCRISTINE SULFATE
     Indication: Follicular lymphoma
     Dosage: 6 COURCES X 3 WEEKLY CYCLES
     Route: 065
     Dates: start: 200609, end: 200701
  7. ONCOVIN [Suspect]
     Active Substance: VINCRISTINE SULFATE
     Dosage: 6 COURCES X 3 WEEKLY CYCLES
     Route: 065
     Dates: start: 201202, end: 201208
  8. PREDNISONE [Suspect]
     Active Substance: PREDNISONE
     Indication: Follicular lymphoma
     Dosage: 6 COURCES X 3 WEEKLY CYCLES
     Route: 065
     Dates: start: 200609, end: 200701
  9. PREDNISONE [Suspect]
     Active Substance: PREDNISONE
     Dosage: 6 COURCES X 3 WEEKLY CYCLES
     Route: 065
     Dates: start: 201202, end: 201208
  10. DOXORUBICIN HYDROCHLORIDE [Suspect]
     Active Substance: DOXORUBICIN HYDROCHLORIDE
     Indication: Follicular lymphoma
     Dosage: 6 COURCES X 3 WEEKLY CYCLES
     Route: 065
     Dates: start: 201202, end: 201208
  11. ACETAZOLAMIDE [Concomitant]
     Active Substance: ACETAZOLAMIDE
     Indication: Headache
  12. DOXYCYCLINE [Concomitant]
     Active Substance: DOXYCYCLINE
     Indication: Pneumonia
     Route: 048
     Dates: start: 2016
  13. CEFTRIAXONE [Concomitant]
     Active Substance: CEFTRIAXONE
     Indication: Parainfluenzae virus infection
     Dates: start: 2020
  14. AZITHROMYCIN [Concomitant]
     Active Substance: AZITHROMYCIN
     Indication: Parainfluenzae virus infection
     Dates: start: 2020
  15. PRIVIGEN [Concomitant]
     Active Substance: HUMAN IMMUNOGLOBULIN G
     Indication: Lower respiratory tract infection
     Route: 042
     Dates: start: 202003
  16. PENICILLIN G [Concomitant]
     Active Substance: PENICILLIN G
     Indication: Pneumonia
     Route: 042
     Dates: start: 2016

REACTIONS (3)
  - Lower respiratory tract infection [Unknown]
  - Papilloedema [Recovered/Resolved]
  - Optic neuritis [Recovered/Resolved]

NARRATIVE: CASE EVENT DATE: 20130401
